FAERS Safety Report 23809940 (Version 1)
Quarter: 2024Q2

REPORT INFORMATION
  Report Type: Spontaneous
  Country: US (occurrence: US)
  Receive Date: 20240502
  Receipt Date: 20240502
  Transmission Date: 20240716
  Serious: No
  Sender: FDA-Public Use
  Company Number: US-SCIEGENP-2024SCSPO00237

PATIENT
  Age: 83 Year
  Sex: Female

DRUGS (1)
  1. PIRFENIDONE [Suspect]
     Active Substance: PIRFENIDONE
     Indication: Product used for unknown indication
     Route: 065

REACTIONS (6)
  - Fall [Unknown]
  - Joint dislocation [Unknown]
  - Upper limb fracture [Unknown]
  - Pain [Unknown]
  - Arthritis [Unknown]
  - Eating disorder [Unknown]
